FAERS Safety Report 13987544 (Version 1)
Quarter: 2017Q3

REPORT INFORMATION
  Report Type: Spontaneous
  Country: US (occurrence: None)
  Receive Date: 20170919
  Receipt Date: 20170919
  Transmission Date: 20171128
  Serious: Yes (Disabling)
  Sender: FDA-Public Use
  Company Number: None

PATIENT
  Age: 50 Year
  Sex: Female
  Weight: 106.6 kg

DRUGS (12)
  1. LIPITOR [Concomitant]
     Active Substance: ATORVASTATIN CALCIUM
  2. TRAMADOL. [Concomitant]
     Active Substance: TRAMADOL
  3. HYDROCODONE-ACETAMINOPHEN [Concomitant]
     Active Substance: ACETAMINOPHEN\HYDROCODONE
  4. LYRICA [Suspect]
     Active Substance: PREGABALIN
     Indication: ALCOHOL USE
  5. CYCLOBENAZEPRINE (FLEXERIL) [Concomitant]
  6. SEROQUEL [Concomitant]
     Active Substance: QUETIAPINE FUMARATE
  7. SIMPONI [Concomitant]
     Active Substance: GOLIMUMAB
  8. NORVASC [Concomitant]
     Active Substance: AMLODIPINE BESYLATE
  9. LIDOCAINE. [Concomitant]
     Active Substance: LIDOCAINE
  10. ZANTAC [Concomitant]
     Active Substance: RANITIDINE HYDROCHLORIDE
  11. TYLENOL EXTRA STRENGTH [Concomitant]
     Active Substance: ACETAMINOPHEN
  12. ZANTAC [Concomitant]
     Active Substance: RANITIDINE HYDROCHLORIDE

REACTIONS (3)
  - Hypersensitivity [None]
  - Muscle spasms [None]
  - Swelling [None]

NARRATIVE: CASE EVENT DATE: 20100408
